FAERS Safety Report 5096039-6 (Version None)
Quarter: 2006Q3

REPORT INFORMATION
  Report Type: 
  Country: None (occurrence: None)
  Receive Date: 20060830
  Receipt Date: 20060814
  Transmission Date: 20061208
  Serious: Yes (Other)
  Sender: FDA-Public Use
  Company Number: 2006098173

PATIENT
  Age: 21 Year
  Sex: Female

DRUGS (5)
  1. GEODON [Suspect]
     Indication: DRUG USE FOR UNKNOWN INDICATION
     Dates: start: 20060724, end: 20060724
  2. TOPAMAX [Suspect]
     Indication: PSYCHIATRIC SYMPTOM
     Dosage: 200 MG (1 D) ORAL
     Route: 048
     Dates: start: 20060301
  3. LEVLITE (ETHINYLESTRADIOL, LEVONORGESTREL) [Concomitant]
  4. CONCERTA [Concomitant]
  5. ZOLOFT [Concomitant]

REACTIONS (4)
  - BREAST ATROPHY [None]
  - LOSS OF CONSCIOUSNESS [None]
  - METRORRHAGIA [None]
  - SOMNOLENCE [None]
